FAERS Safety Report 19416256 (Version 1)
Quarter: 2021Q2

REPORT INFORMATION
  Report Type: Spontaneous
  Country: CN (occurrence: CN)
  Receive Date: 20210614
  Receipt Date: 20210614
  Transmission Date: 20210717
  Serious: Yes (Hospitalization)
  Sender: FDA-Public Use
  Company Number: NVSC2021CN132283

PATIENT
  Age: 59 Year
  Sex: Male

DRUGS (4)
  1. OXCARBAZEPINE. [Suspect]
     Active Substance: OXCARBAZEPINE
     Indication: EPILEPSY
     Dosage: 300 MG, BID
     Route: 048
  2. SODIUM BROMIDE [Concomitant]
     Active Substance: SODIUM BROMIDE
     Indication: EPILEPSY
     Dosage: UNK
     Route: 065
  3. PHENOBARBITAL. [Concomitant]
     Active Substance: PHENOBARBITAL
     Indication: EPILEPSY
     Dosage: UNK
     Route: 065
  4. SODIUM VALPROATE [Concomitant]
     Active Substance: VALPROATE SODIUM
     Indication: EPILEPSY
     Dosage: SUSTAIN RELEASE TABLETS
     Route: 065

REACTIONS (2)
  - Henoch-Schonlein purpura [Recovering/Resolving]
  - Henoch-Schonlein purpura nephritis [Recovered/Resolved]
